FAERS Safety Report 17492566 (Version 1)
Quarter: 2020Q1

REPORT INFORMATION
  Report Type: Spontaneous
  Country: US (occurrence: US)
  Receive Date: 20200303
  Receipt Date: 20200303
  Transmission Date: 20200409
  Serious: No
  Sender: FDA-Public Use
  Company Number: US-TEVA-2020-US-1192900

PATIENT
  Sex: Male

DRUGS (1)
  1. DEXMETHYLPHENIDATE HYDROCHLORIDE ER TEVA [Suspect]
     Active Substance: DEXMETHYLPHENIDATE HYDROCHLORIDE
     Indication: ATTENTION DEFICIT/HYPERACTIVITY DISORDER
     Route: 065

REACTIONS (9)
  - Gastrointestinal disorder [Unknown]
  - Vomiting [Recovered/Resolved]
  - Wrong technique in product usage process [Unknown]
  - Product physical issue [Unknown]
  - Malaise [Unknown]
  - Product physical consistency issue [Unknown]
  - Pain [Unknown]
  - Ill-defined disorder [Unknown]
  - Abdominal pain upper [Unknown]

NARRATIVE: CASE EVENT DATE: 20200116
